FAERS Safety Report 8909210 (Version 1)
Quarter: 2012Q4

REPORT INFORMATION
  Report Type: Spontaneous
  Country: US (occurrence: None)
  Receive Date: 20121113
  Receipt Date: 20121113
  Transmission Date: 20130627
  Serious: Yes (Other)
  Sender: FDA-Public Use
  Company Number: None

PATIENT
  Sex: Male

DRUGS (1)
  1. ENBREL [Suspect]
     Dosage: 50 MG WEEKLY SQ
     Route: 058
     Dates: start: 20120917, end: 20121109

REACTIONS (2)
  - Anxiety [None]
  - Panic attack [None]
